FAERS Safety Report 7250149-3 (Version None)
Quarter: 2011Q1

REPORT INFORMATION
  Report Type: 
  Country: None (occurrence: None)
  Receive Date: 20110128
  Receipt Date: 20110103
  Transmission Date: 20110831
  Serious: Yes (Other)
  Sender: FDA-Public Use
  Company Number: US-BAYER-2010-006781

PATIENT
  Sex: Female
  Weight: 73 kg

DRUGS (4)
  1. YAZ [Suspect]
     Indication: CONTRACEPTION
     Dosage: UNK
     Dates: start: 20080701, end: 20081201
  2. MIRENA [Concomitant]
     Indication: PRODUCT USED FOR UNKNOWN INDICATION
  3. EXCEDRIN (MIGRAINE) [Concomitant]
     Indication: PRODUCT USED FOR UNKNOWN INDICATION
  4. ASCORBIC ACID [Concomitant]
     Indication: PRODUCT USED FOR UNKNOWN INDICATION

REACTIONS (10)
  - PAIN [None]
  - NAUSEA [None]
  - CHOLELITHIASIS [None]
  - DEPRESSION [None]
  - NERVOUSNESS [None]
  - VOMITING [None]
  - EMOTIONAL DISTRESS [None]
  - CHOLECYSTITIS ACUTE [None]
  - GALLBLADDER CHOLESTEROLOSIS [None]
  - FEAR OF DEATH [None]
